FAERS Safety Report 7514274-1 (Version None)
Quarter: 2011Q2

REPORT INFORMATION
  Report Type: 
  Country: None (occurrence: None)
  Receive Date: 20110601
  Receipt Date: 20110527
  Transmission Date: 20111010
  Serious: Yes (Other)
  Sender: FDA-Public Use
  Company Number: FR-BIOGENIDEC-2011BI018453

PATIENT
  Age: 49 Year
  Sex: Female

DRUGS (3)
  1. NEURONTIN [Concomitant]
     Indication: PAIN
     Dates: start: 20110323
  2. TYSABRI [Suspect]
     Indication: MULTIPLE SCLEROSIS
     Route: 042
     Dates: start: 20100505, end: 20110420
  3. TOPIRAMATE [Concomitant]
     Indication: NEURALGIA
     Dates: start: 20101123

REACTIONS (3)
  - FATIGUE [None]
  - FEELING HOT [None]
  - SECONDARY PROGRESSIVE MULTIPLE SCLEROSIS [None]
